FAERS Safety Report 19648528 (Version 5)
Quarter: 2022Q2

REPORT INFORMATION
  Report Type: Report from Study
  Country: JP (occurrence: JP)
  Receive Date: 20210802
  Receipt Date: 20220531
  Transmission Date: 20220720
  Serious: Yes (Hospitalization)
  Sender: FDA-Public Use
  Company Number: JP-BIOGEN-2021BI01035091

PATIENT
  Age: 38 Year
  Sex: Female

DRUGS (23)
  1. TECFIDERA [Interacting]
     Active Substance: DIMETHYL FUMARATE
     Indication: Multiple sclerosis
     Route: 048
     Dates: start: 20180927
  2. TECFIDERA [Interacting]
     Active Substance: DIMETHYL FUMARATE
     Route: 048
     Dates: start: 20181018, end: 20201130
  3. METHYLPREDNISOLONE [Interacting]
     Active Substance: METHYLPREDNISOLONE
     Indication: Multiple sclerosis relapse
     Route: 042
     Dates: start: 20190709, end: 20190711
  4. METHYLPREDNISOLONE [Interacting]
     Active Substance: METHYLPREDNISOLONE
     Dosage: TOTAL DAILY DOSE: 500-1000 MG
     Route: 042
     Dates: start: 20190816, end: 20190912
  5. METHYLPREDNISOLONE [Interacting]
     Active Substance: METHYLPREDNISOLONE
     Route: 042
     Dates: start: 20191009, end: 20191018
  6. METHYLCOBALAMIN [Concomitant]
     Active Substance: METHYLCOBALAMIN
     Indication: Cervicobrachial syndrome
     Route: 048
     Dates: end: 20201130
  7. BESTON [Concomitant]
     Indication: Cervicobrachial syndrome
     Route: 048
     Dates: end: 20201130
  8. AFLOQUALONE [Concomitant]
     Active Substance: AFLOQUALONE
     Indication: Cervicobrachial syndrome
     Route: 048
     Dates: start: 20181114, end: 20190619
  9. LOXOPROFEN [Concomitant]
     Active Substance: LOXOPROFEN
     Indication: Migraine
     Route: 048
     Dates: end: 20201130
  10. LANSOPRAZOLE [Concomitant]
     Active Substance: LANSOPRAZOLE
     Indication: Prophylaxis
     Route: 048
     Dates: start: 20180927, end: 20201130
  11. BUFFERIN [Concomitant]
     Active Substance: ASPIRIN
     Indication: Prophylaxis
     Route: 048
     Dates: start: 20181004, end: 20201130
  12. MAXALT [Concomitant]
     Active Substance: RIZATRIPTAN BENZOATE
     Indication: Migraine
     Route: 048
     Dates: start: 20190130, end: 20201130
  13. LYRICA [Concomitant]
     Active Substance: PREGABALIN
     Indication: Cervicobrachial syndrome
     Route: 048
     Dates: start: 20190227, end: 20191030
  14. ZOMIG [Concomitant]
     Active Substance: ZOLMITRIPTAN
     Indication: Migraine
     Dosage: TOTAL DAILY DOSE: 2.5
     Route: 048
     Dates: start: 20190916, end: 20191002
  15. PREDNISOLONE [Concomitant]
     Active Substance: PREDNISOLONE
     Indication: Multiple sclerosis
     Route: 048
     Dates: start: 20191018, end: 20191030
  16. PREDNISOLONE [Concomitant]
     Active Substance: PREDNISOLONE
     Route: 048
     Dates: start: 20191031, end: 20191127
  17. PREDNISOLONE [Concomitant]
     Active Substance: PREDNISOLONE
     Route: 048
     Dates: start: 20191128, end: 20200122
  18. PREDNISOLONE [Concomitant]
     Active Substance: PREDNISOLONE
     Route: 048
     Dates: start: 20200123, end: 20200318
  19. PREDNISOLONE [Concomitant]
     Active Substance: PREDNISOLONE
     Route: 048
     Dates: start: 20200319, end: 20200415
  20. PREDNISOLONE [Concomitant]
     Active Substance: PREDNISOLONE
     Route: 048
     Dates: start: 20200319, end: 20200520
  21. PREDNISOLONE [Concomitant]
     Active Substance: PREDNISOLONE
     Route: 048
     Dates: start: 20200521, end: 20200617
  22. PREDNISOLONE [Concomitant]
     Active Substance: PREDNISOLONE
     Route: 048
     Dates: start: 20200618, end: 20200826
  23. PREDNISOLONE [Concomitant]
     Active Substance: PREDNISOLONE
     Route: 048
     Dates: start: 20200827, end: 20201130

REACTIONS (9)
  - Multiple sclerosis relapse [Recovered/Resolved]
  - Enterocolitis [Recovered/Resolved]
  - Sciatica [Not Recovered/Not Resolved]
  - Leukocytosis [Recovered/Resolved]
  - Thrombocytosis [Recovered/Resolved]
  - Dyslipidaemia [Not Recovered/Not Resolved]
  - Lymphocyte count decreased [Recovered/Resolved]
  - Drug interaction [Unknown]
  - Enterocolitis bacterial [Recovered/Resolved]

NARRATIVE: CASE EVENT DATE: 20190715
